FAERS Safety Report 5944239-2 (Version None)
Quarter: 2008Q4

REPORT INFORMATION
  Report Type: 
  Country: None (occurrence: None)
  Receive Date: 20081104
  Receipt Date: 20081021
  Transmission Date: 20090506
  Serious: Yes (Other)
  Sender: FDA-Public Use
  Company Number: 2008US002628

PATIENT
  Age: 60 Year
  Sex: Male

DRUGS (9)
  1. LEXISCAN [Suspect]
     Indication: SCAN MYOCARDIAL PERFUSION
     Dosage: 0.4 MG, IV NOS
     Route: 042
     Dates: start: 20080826, end: 20080826
  2. ASPIRIN [Concomitant]
  3. PLAVIX [Concomitant]
  4. METOPROLOL TARTRATE [Concomitant]
  5. LISINOPRIL (LISINOPRIL DIHYDRATE) [Concomitant]
  6. COMBIVENT [Concomitant]
  7. LIPITOR [Concomitant]
  8. FLOMAX [Concomitant]
  9. ADVAIR DISKUS 100/50 [Concomitant]

REACTIONS (4)
  - ABDOMINAL PAIN [None]
  - DYSPNOEA [None]
  - FLUSHING [None]
  - HEART RATE INCREASED [None]
